FAERS Safety Report 5808363-7 (Version None)
Quarter: 2008Q3

REPORT INFORMATION
  Report Type: 
  Country: None (occurrence: None)
  Receive Date: 20080714
  Receipt Date: 20080703
  Transmission Date: 20090109
  Serious: Yes (Other)
  Sender: FDA-Public Use
  Company Number: PHHY2008CA13193

PATIENT

DRUGS (3)
  1. DIOVAN [Suspect]
     Dosage: 320MG
     Route: 048
  2. CALCIUM CHANNEL BLOCKERS [Concomitant]
  3. BETA BLOCKING AGENTS [Concomitant]

REACTIONS (2)
  - BLOOD PRESSURE INCREASED [None]
  - MICROALBUMINURIA [None]
